FAERS Safety Report 6540598-0 (Version None)
Quarter: 2010Q1

REPORT INFORMATION
  Report Type: 
  Country: None (occurrence: None)
  Receive Date: 20100118
  Receipt Date: 20100108
  Transmission Date: 20100710
  Serious: Yes (Life-Threatening)
  Sender: FDA-Public Use
  Company Number: DE-ELI_LILLY_AND_COMPANY-DE201001001553

PATIENT
  Sex: Male
  Weight: 75 kg

DRUGS (11)
  1. PEMETREXED [Suspect]
     Indication: NON-SMALL CELL LUNG CANCER
     Dosage: 500 MG/M2, ON D1 EVERY 21 DAYS
     Route: 042
     Dates: start: 20091203
  2. CETUXIMAB [Suspect]
     Indication: NON-SMALL CELL LUNG CANCER
     Dosage: 400 MG/M2, D1 CYCLE 1
     Route: 042
     Dates: start: 20091203, end: 20091203
  3. CETUXIMAB [Suspect]
     Dosage: 250 MG/M2, WEEKLY (1/W)
     Route: 042
  4. CISPLATIN [Suspect]
     Indication: NON-SMALL CELL LUNG CANCER
     Dosage: 75 MG/M2, ON D1 EVERY 21 DAYS
     Route: 042
     Dates: start: 20091203
  5. FOLIC ACID [Concomitant]
     Indication: PROPHYLAXIS
     Dates: start: 20091126
  6. VIT B12 [Concomitant]
     Indication: PROPHYLAXIS
     Dates: start: 20091125
  7. CORTICOSTEROIDS [Concomitant]
     Indication: PROPHYLAXIS
     Dates: start: 20091202
  8. ANTIHISTAMINES [Concomitant]
     Indication: PROPHYLAXIS
     Dates: start: 20091203
  9. VALORAN [Concomitant]
     Indication: PAIN
     Dates: start: 20091126
  10. NOVALGIN [Concomitant]
     Indication: PAIN
     Dates: start: 20091126
  11. MCP [Concomitant]
     Indication: NAUSEA
     Dates: start: 20091223

REACTIONS (1)
  - INTRACARDIAC THROMBUS [None]
